FAERS Safety Report 5043209-9 (Version None)
Quarter: 2006Q3

REPORT INFORMATION
  Report Type: 
  Country: None (occurrence: None)
  Receive Date: 20060703
  Receipt Date: 20060703
  Transmission Date: 20061208
  Serious: Yes (Hospitalization)
  Sender: FDA-Public Use
  Company Number: None

PATIENT
  Sex: Female
  Weight: 64 kg

DRUGS (3)
  1. TAXOTERE [Suspect]
     Indication: BREAST CANCER
     Dosage: 60MG/M2  EVERY 3 WEEKS
     Dates: start: 20060228
  2. HERCEPTIN [Suspect]
     Indication: BREAST CANCER
     Dosage: 6MG/KG EVERY 3 WEEKS
     Dates: start: 20060228
  3. IRESSA [Suspect]
     Indication: BREAST CANCER
     Dosage: 250MG  DAILY  (PO) ON DAYS 2-15
     Route: 048
     Dates: start: 20060301

REACTIONS (6)
  - ABDOMINAL DISCOMFORT [None]
  - ABDOMINAL PAIN [None]
  - DEHYDRATION [None]
  - NAUSEA [None]
  - PANCREATIC ENZYMES INCREASED [None]
  - VOMITING [None]
